FAERS Safety Report 6960918-2 (Version None)
Quarter: 2010Q3

REPORT INFORMATION
  Report Type: 
  Country: None (occurrence: None)
  Receive Date: 20100901
  Receipt Date: 20100706
  Transmission Date: 20110219
  Serious: Yes (Hospitalization)
  Sender: FDA-Public Use
  Company Number: US-ELI_LILLY_AND_COMPANY-US201008008693

PATIENT
  Sex: Female

DRUGS (6)
  1. FORTEO [Suspect]
     Dosage: UNK, UNK
     Dates: start: 20100301
  2. CRESTOR [Concomitant]
     Indication: BLOOD CHOLESTEROL
  3. DICLOFEN [Concomitant]
  4. NITROGLYCERIN [Concomitant]
  5. LYRICA [Concomitant]
     Indication: PAIN
  6. NEXIUM [Concomitant]

REACTIONS (4)
  - BLOOD DISORDER [None]
  - TONGUE DISORDER [None]
  - TRANSIENT ISCHAEMIC ATTACK [None]
  - VIITH NERVE PARALYSIS [None]
